FAERS Safety Report 8592202-8 (Version None)
Quarter: 2012Q3

REPORT INFORMATION
  Report Type: 
  Country: None (occurrence: None)
  Receive Date: 20120814
  Receipt Date: 20120806
  Transmission Date: 20120928
  Serious: Yes (Other)
  Sender: FDA-Public Use
  Company Number: DE-B.I. PHARMACEUTICALS,INC./RIDGEFIELD-2012-DE-01184DE

PATIENT
  Sex: Female
  Weight: 90 kg

DRUGS (5)
  1. BEZAFIBRAT [Concomitant]
     Indication: HYPERLIPIDAEMIA
     Dosage: 400 MG
     Route: 048
  2. METOPROLOL [Concomitant]
     Indication: HYPERTENSION
     Dosage: 190 MG
     Route: 048
  3. ASPIRIN [Concomitant]
     Indication: ARTERIOSCLEROSIS CORONARY ARTERY
     Dosage: 100 MG
     Route: 048
  4. RAMIPRIL [Concomitant]
     Dosage: 10 MG
  5. PRADAXA [Suspect]
     Indication: ATRIAL FIBRILLATION
     Route: 048
     Dates: start: 20120424

REACTIONS (4)
  - DRY THROAT [None]
  - HYPERTENSIVE CRISIS [None]
  - NAUSEA [None]
  - OEDEMA PERIPHERAL [None]
